FAERS Safety Report 9778758 (Version 1)
Quarter: 2013Q4

REPORT INFORMATION
  Report Type: Spontaneous
  Country: DK (occurrence: DK)
  Receive Date: 20131223
  Receipt Date: 20131223
  Transmission Date: 20140711
  Serious: Yes (Hospitalization)
  Sender: FDA-Public Use
  Company Number: DK-TEVA-451197ISR

PATIENT
  Age: 64 Year
  Sex: Female
  Weight: 43 kg

DRUGS (1)
  1. HYDROCHLOROTHIAZIDE W/LOSARTAN [Suspect]
     Indication: HYPERTENSION
     Dosage: 1 DOSAGE FORMS DAILY; STRENGTH: 50+12,5
     Route: 048
     Dates: start: 2000, end: 20131031

REACTIONS (1)
  - Hypernatraemia [Recovering/Resolving]
